FAERS Safety Report 9370736 (Version 1)
Quarter: 2013Q2

REPORT INFORMATION
  Report Type: Spontaneous
  Country: CA (occurrence: CA)
  Receive Date: 20130626
  Receipt Date: 20130626
  Transmission Date: 20140414
  Serious: Yes (Hospitalization, Other)
  Sender: FDA-Public Use
  Company Number: CA-TEVA-415281USA

PATIENT
  Age: 60 Year
  Sex: Male

DRUGS (9)
  1. ENALAPRIL [Suspect]
     Route: 048
  2. HYDROCHLOROTHIAZIDE [Suspect]
     Dosage: 25 MILLIGRAM DAILY;
     Route: 048
  3. ASA [Concomitant]
  4. ATORVASTATIN CALCIUM [Concomitant]
  5. DIVALPROEX SODIUM [Concomitant]
  6. METFORMIN [Concomitant]
  7. RABEPRAZOLE [Concomitant]
  8. RISPERIDONE [Concomitant]
  9. VENLAFAXINE XR [Concomitant]
     Dosage: EXTENDED RELEASE

REACTIONS (3)
  - Dizziness [Unknown]
  - Fall [Unknown]
  - Hypotension [Unknown]
